FAERS Safety Report 8372965-7 (Version None)
Quarter: 2012Q2

REPORT INFORMATION
  Report Type: 
  Country: None (occurrence: None)
  Receive Date: 20120521
  Receipt Date: 20110701
  Transmission Date: 20120825
  Serious: No
  Sender: FDA-Public Use
  Company Number: US-ASTRAZENECA-2011SE49007

PATIENT
  Sex: Male

DRUGS (1)
  1. PRILOSEC OTC [Suspect]
     Route: 048
     Dates: start: 20110619, end: 20110628

REACTIONS (9)
  - CHEST PAIN [None]
  - AGITATION [None]
  - NAUSEA [None]
  - SOMNOLENCE [None]
  - PERIPHERAL COLDNESS [None]
  - DYSPNOEA [None]
  - LETHARGY [None]
  - FEELING COLD [None]
  - PALLOR [None]
